FAERS Safety Report 8067036-3 (Version None)
Quarter: 2012Q1

REPORT INFORMATION
  Report Type: 
  Country: None (occurrence: None)
  Receive Date: 20120124
  Receipt Date: 20120117
  Transmission Date: 20120608
  Serious: Yes (Hospitalization)
  Sender: FDA-Public Use
  Company Number: GB-JNJFOC-20111202570

PATIENT
  Sex: Female

DRUGS (2)
  1. NICORETTE ICY WHITE GUM 4 MG [Suspect]
     Indication: PRODUCT USED FOR UNKNOWN INDICATION
     Route: 048
  2. NICORETTE ICY WHITE GUM 2 MG [Suspect]
     Indication: PRODUCT USED FOR UNKNOWN INDICATION
     Route: 048
     Dates: start: 20100101

REACTIONS (3)
  - HOSPITALISATION [None]
  - INCORRECT DRUG ADMINISTRATION DURATION [None]
  - PRODUCT PACKAGING ISSUE [None]
